FAERS Safety Report 8085321-6 (Version None)
Quarter: 2012Q1

REPORT INFORMATION
  Report Type: 
  Country: None (occurrence: None)
  Receive Date: 20120128
  Receipt Date: 20110418
  Transmission Date: 20120608
  Serious: No
  Sender: FDA-Public Use
  Company Number: US-ABBOTT-08P-163-0447838-00

PATIENT
  Sex: Female
  Weight: 58.112 kg

DRUGS (6)
  1. HUMIRA [Suspect]
     Indication: RHEUMATOID ARTHRITIS
     Dates: start: 20070601
  2. UNKNOWN HIGH CHOLESTEROL MEDICATION [Concomitant]
     Indication: BLOOD CHOLESTEROL INCREASED
  3. HUMIRA [Suspect]
     Indication: PSORIATIC ARTHROPATHY
  4. UNKNOWN BLOOD PRESSURE MEDICATION [Concomitant]
     Indication: HYPERTENSION
  5. HUMIRA [Suspect]
     Indication: CROHN'S DISEASE
     Dates: start: 20080101
  6. ASACOL [Concomitant]
     Indication: CROHN'S DISEASE
     Route: 048
     Dates: start: 19980101

REACTIONS (1)
  - INJECTION SITE PAIN [None]
